FAERS Safety Report 9361780 (Version 1)
Quarter: 2013Q2

REPORT INFORMATION
  Report Type: Spontaneous
  Country: US (occurrence: US)
  Receive Date: 20130621
  Receipt Date: 20130621
  Transmission Date: 20140414
  Serious: Yes (Death, Other)
  Sender: FDA-Public Use
  Company Number: PHHY2013US062789

PATIENT
  Age: 16 Year
  Sex: Female

DRUGS (1)
  1. FLUDARABINE [Suspect]
     Dosage: 40 MG/M2, UNK

REACTIONS (15)
  - Urosepsis [Fatal]
  - Hallucination [Recovered/Resolved]
  - Leukoencephalopathy [Unknown]
  - Pain in extremity [Unknown]
  - Paraesthesia [Unknown]
  - Autonomic nervous system imbalance [Unknown]
  - Gait disturbance [Unknown]
  - Confusional state [Unknown]
  - Apnoea [Unknown]
  - Tearfulness [Unknown]
  - Visual impairment [Unknown]
  - Neuralgia [Unknown]
  - Hypokinesia [Unknown]
  - Chills [Unknown]
  - Pyrexia [Unknown]
